FAERS Safety Report 21768170 (Version 5)
Quarter: 2023Q1

REPORT INFORMATION
  Report Type: Spontaneous
  Country: AT (occurrence: AT)
  Receive Date: 20221222
  Receipt Date: 20230215
  Transmission Date: 20230418
  Serious: Yes (Other)
  Sender: FDA-Public Use
  Company Number: AT-MYLANLABS-2022M1140795

PATIENT
  Age: 60 Year
  Sex: Male

DRUGS (12)
  1. ATORVASTATIN CALCIUM [Suspect]
     Active Substance: ATORVASTATIN CALCIUM
     Indication: Hyperlipidaemia
     Dosage: START DT:POST OPERATION-BYPASS SURGERY STOP DT:Q2
     Route: 065
     Dates: start: 2020, end: 2021
  2. ADALIMUMAB [Suspect]
     Active Substance: ADALIMUMAB
     Indication: Myalgia
     Dosage: UNK
     Route: 065
     Dates: start: 2021, end: 202206
  3. ADALIMUMAB [Suspect]
     Active Substance: ADALIMUMAB
     Indication: Psoriatic arthropathy
     Dosage: 80 MILLIGRAM
     Route: 058
     Dates: start: 202102
  4. ADALIMUMAB [Suspect]
     Active Substance: ADALIMUMAB
     Indication: Arthralgia
     Dosage: 40 MILLIGRAM
     Route: 058
     Dates: start: 202103, end: 202206
  5. ROSUVASTATIN [Suspect]
     Active Substance: ROSUVASTATIN
     Indication: Hyperlipidaemia
     Dosage: 30 MILLIGRAM AM
     Route: 065
  6. ROSUVASTATIN [Suspect]
     Active Substance: ROSUVASTATIN
     Dosage: ROSUVASTATIN 20 MG AGAIN IN THE MORNINGS
     Route: 048
     Dates: start: 202203, end: 202208
  7. ROSUVASTATIN [Suspect]
     Active Substance: ROSUVASTATIN
     Dosage: 10 MILLIGRAM, QD (10 MILLIGRAM, AM)
     Route: 048
     Dates: start: 202208
  8. EZETIMIBE\ROSUVASTATIN CALCIUM [Suspect]
     Active Substance: EZETIMIBE\ROSUVASTATIN CALCIUM
     Indication: Hyperlipidaemia
     Dosage: 20MG + 10MG
     Route: 065
     Dates: start: 2021, end: 202203
  9. EZETIMIBE\ROSUVASTATIN CALCIUM [Suspect]
     Active Substance: EZETIMIBE\ROSUVASTATIN CALCIUM
     Dosage: 20MG + 10MG
     Route: 065
     Dates: start: 2022, end: 2022
  10. EZETIMIBE [Suspect]
     Active Substance: EZETIMIBE
     Indication: Hyperlipidaemia
     Dosage: AS SINGLE TABLETS, EZETIMIBE 10 MG IN THE EVENINGS
     Route: 048
     Dates: start: 202101, end: 202203
  11. EZETIMIBE [Suspect]
     Active Substance: EZETIMIBE
     Dosage: 10 MG (IN EVENING)
     Route: 048
     Dates: start: 202203
  12. EZETIMIBE [Suspect]
     Active Substance: EZETIMIBE
     Dosage: EZETIMIBE 10 MG IN THE EVENINGS
     Route: 048
     Dates: start: 2022

REACTIONS (6)
  - Psoriatic arthropathy [Recovered/Resolved]
  - Myalgia [Recovered/Resolved]
  - Arthralgia [Recovered/Resolved]
  - Muscular weakness [Recovered/Resolved]
  - Therapeutic product effect incomplete [Recovered/Resolved]
  - Drug ineffective [Unknown]

NARRATIVE: CASE EVENT DATE: 20210101
